FAERS Safety Report 10072329 (Version 1)
Quarter: 2014Q2

REPORT INFORMATION
  Report Type: Spontaneous
  Country: GB (occurrence: GB)
  Receive Date: 20140411
  Receipt Date: 20140411
  Transmission Date: 20141212
  Serious: Yes (Other)
  Sender: FDA-Public Use
  Company Number: GB-SA-2014SA043589

PATIENT
  Age: 34 Year
  Sex: Female
  Weight: 75 kg

DRUGS (3)
  1. FEXOFENADINE HYDROCHLORIDE [Suspect]
     Indication: PRODUCT USED FOR UNKNOWN INDICATION
     Route: 065
     Dates: start: 20140225
  2. CLARITHROMYCIN [Concomitant]
     Route: 065
     Dates: start: 20140130, end: 20140206
  3. SALBUTAMOL [Concomitant]
     Route: 065
     Dates: start: 20140303

REACTIONS (1)
  - Eye swelling [Recovered/Resolved]
